FAERS Safety Report 20959902 (Version 1)
Quarter: 2022Q2

REPORT INFORMATION
  Report Type: Spontaneous
  Country: JP (occurrence: JP)
  Receive Date: 20220614
  Receipt Date: 20220614
  Transmission Date: 20220720
  Serious: Yes (Death, Other)
  Sender: FDA-Public Use
  Company Number: JP-STRIDES ARCOLAB LIMITED-2022SP007001

PATIENT
  Age: 78 Year
  Sex: Male

DRUGS (6)
  1. METHOTREXATE [Suspect]
     Active Substance: METHOTREXATE
     Indication: Central nervous system lymphoma
     Dosage: UNK, RECEIVED HIGH DOSE METHOTREXATE
     Route: 065
  2. DOXORUBICIN [Suspect]
     Active Substance: DOXORUBICIN
     Indication: Central nervous system lymphoma
     Dosage: UNK, R-CHOP REGIMEN
     Route: 065
  3. PREDNISOLONE [Suspect]
     Active Substance: PREDNISOLONE
     Indication: Central nervous system lymphoma
     Dosage: UNK, R-CHOP REGIMEN
     Route: 065
  4. RITUXIMAB [Suspect]
     Active Substance: RITUXIMAB
     Indication: Central nervous system lymphoma
     Dosage: UNK R-CHOP REGIMEN
     Route: 065
  5. CYCLOPHOSPHAMIDE [Suspect]
     Active Substance: CYCLOPHOSPHAMIDE
     Indication: Central nervous system lymphoma
     Dosage: UNK, R-CHOP REGIMEN
     Route: 065
  6. VINCRISTINE [Suspect]
     Active Substance: VINCRISTINE
     Indication: Central nervous system lymphoma
     Dosage: UNK R-CHOP REGIMEN
     Route: 065

REACTIONS (1)
  - Drug ineffective [Fatal]
